FAERS Safety Report 14119277 (Version 1)
Quarter: 2017Q4

REPORT INFORMATION
  Report Type: Spontaneous
  Country: US (occurrence: US)
  Receive Date: 20171023
  Receipt Date: 20171023
  Transmission Date: 20180321
  Serious: No
  Sender: FDA-Public Use
  Company Number: None

PATIENT
  Age: 59 Year
  Sex: Male
  Weight: 66.15 kg

DRUGS (1)
  1. AMIKACIN [Suspect]
     Active Substance: AMIKACIN
     Indication: MYCOBACTERIAL INFECTION
     Dosage: ?          OTHER FREQUENCY:MONDAYS/THURSDAYS;?
     Route: 042
     Dates: start: 20170915, end: 20171005

REACTIONS (2)
  - Pruritus [None]
  - Tinnitus [None]

NARRATIVE: CASE EVENT DATE: 20171005
